FAERS Safety Report 16304184 (Version 1)
Quarter: 2019Q2

REPORT INFORMATION
  Report Type: Spontaneous
  Country: ES (occurrence: ES)
  Receive Date: 20190513
  Receipt Date: 20190513
  Transmission Date: 20190711
  Serious: Yes (Life-Threatening, Other)
  Sender: FDA-Public Use
  Company Number: ES-JAZZ-2019-ES-006215

PATIENT
  Age: 72 Year
  Sex: Female
  Weight: 56 kg

DRUGS (1)
  1. VYXEOS [Suspect]
     Active Substance: CYTARABINE\DAUNORUBICIN
     Indication: ACUTE MYELOID LEUKAEMIA
     Dosage: 70 MG/160 MG EVERY 2 DAYS 3 DOSES
     Route: 041
     Dates: start: 20190225, end: 20190301

REACTIONS (1)
  - Acute pulmonary oedema [Recovering/Resolving]

NARRATIVE: CASE EVENT DATE: 20190327
